FAERS Safety Report 4675404-2 (Version None)
Quarter: 2005Q2

REPORT INFORMATION
  Report Type: 
  Country: None (occurrence: None)
  Receive Date: 20050527
  Receipt Date: 20050218
  Transmission Date: 20051028
  Serious: Yes (Hospitalization)
  Sender: FDA-Public Use
  Company Number: US-BRISTOL-MYERS SQUIBB COMPANY-12872206

PATIENT
  Age: 10 Year
  Sex: Male
  Weight: 30 kg

DRUGS (3)
  1. ABILIFY [Suspect]
     Route: 048
     Dates: start: 20050131, end: 20050202
  2. SEROQUEL [Suspect]
     Route: 048
     Dates: start: 20041101, end: 20050131
  3. ADDERALL 10 [Concomitant]

REACTIONS (6)
  - COORDINATION ABNORMAL [None]
  - DROOLING [None]
  - DYSTONIA [None]
  - MUSCLE SPASMS [None]
  - TREMOR [None]
  - VOMITING [None]
